FAERS Safety Report 14582842 (Version 2)
Quarter: 2018Q1

REPORT INFORMATION
  Report Type: Spontaneous
  Country: IT (occurrence: IT)
  Receive Date: 20180228
  Receipt Date: 20180323
  Transmission Date: 20180509
  Serious: Yes (Other)
  Sender: FDA-Public Use
  Company Number: IT-GILEAD-2018-0322399

PATIENT
  Age: 40 Year
  Sex: Female

DRUGS (7)
  1. TENOFOVIR DISOPROXIL FUMARATE. [Suspect]
     Active Substance: TENOFOVIR DISOPROXIL FUMARATE
     Indication: HIV INFECTION
     Dosage: UNK
     Route: 065
  2. DARUNAVIR [Suspect]
     Active Substance: DARUNAVIR
     Dosage: 2 DF, QD
     Route: 048
  3. MARAVIROC [Suspect]
     Active Substance: MARAVIROC
     Indication: HIV INFECTION
     Dosage: UNK
     Route: 065
  4. DARUNAVIR [Suspect]
     Active Substance: DARUNAVIR
     Indication: HIV INFECTION
     Dosage: 1 DF, QD
     Route: 048
  5. RITONAVIR. [Suspect]
     Active Substance: RITONAVIR
     Indication: HIV INFECTION
     Dosage: 1 DF, QD
     Route: 065
  6. ATAZANAVIR. [Concomitant]
     Active Substance: ATAZANAVIR SULFATE
     Indication: HIV INFECTION
     Dosage: 1 UNK, UNK
  7. RITONAVIR. [Suspect]
     Active Substance: RITONAVIR
     Dosage: 2 DF, QD
     Route: 065

REACTIONS (5)
  - CSF test abnormal [Recovered/Resolved]
  - Neurological symptom [Recovered/Resolved]
  - Parkinsonism [Recovered/Resolved]
  - Viral load increased [Recovered/Resolved]
  - Drug ineffective [Recovered/Resolved]
